FAERS Safety Report 16069245 (Version 1)
Quarter: 2019Q1

REPORT INFORMATION
  Report Type: Spontaneous
  Country: GB (occurrence: GB)
  Receive Date: 20190313
  Receipt Date: 20190313
  Transmission Date: 20190418
  Serious: Yes (Other)
  Sender: FDA-Public Use
  Company Number: PHHY2019GB054770

PATIENT
  Age: 5 Year
  Sex: Male

DRUGS (2)
  1. NYSTATIN SANDOZ [Suspect]
     Active Substance: NYSTATIN
     Indication: ORAL INFECTION
  2. NYSTATIN SANDOZ [Suspect]
     Active Substance: NYSTATIN
     Indication: ORAL CANDIDIASIS
     Route: 065

REACTIONS (4)
  - Autism spectrum disorder [Unknown]
  - Tongue movement disturbance [Unknown]
  - Condition aggravated [Unknown]
  - Aphasia [Unknown]
